FAERS Safety Report 9260924 (Version 1)
Quarter: 2013Q2

REPORT INFORMATION
  Report Type: Spontaneous
  Country: US (occurrence: US)
  Receive Date: 20130429
  Receipt Date: 20130429
  Transmission Date: 20140414
  Serious: No
  Sender: FDA-Public Use
  Company Number: US-AMGEN-USASP2012026810

PATIENT
  Sex: Female

DRUGS (6)
  1. SENSIPAR [Suspect]
     Indication: PARATHYROID TUMOUR
     Dosage: 60 MG, QD
     Dates: start: 201109
  2. SERTRALINE [Concomitant]
     Dosage: UNK
  3. WARFARIN [Concomitant]
     Dosage: UNK
  4. METOPROLOL [Concomitant]
     Dosage: UNK
  5. LOSARTAN [Concomitant]
     Dosage: UNK
  6. VYTORIN [Concomitant]
     Dosage: UNK

REACTIONS (2)
  - Fatigue [Not Recovered/Not Resolved]
  - Nausea [Not Recovered/Not Resolved]
